FAERS Safety Report 25045955 (Version 2)
Quarter: 2025Q1

REPORT INFORMATION
  Report Type: Spontaneous
  Country: FR (occurrence: FR)
  Receive Date: 20250306
  Receipt Date: 20250310
  Transmission Date: 20250409
  Serious: Yes (Hospitalization)
  Sender: BAYER HEALTHCARE PHARMACEUTICALS INC.
  Company Number: None

PATIENT
  Age: 63 Year
  Sex: Male
  Weight: 76 kg

DRUGS (3)
  1. NEXAVAR [Suspect]
     Active Substance: SORAFENIB
     Indication: Neoplasm malignant
     Dosage: 400 MG, BID
     Route: 048
     Dates: start: 20250113, end: 20250121
  2. IMFINZI [Suspect]
     Active Substance: DURVALUMAB
     Indication: Neoplasm malignant
     Dosage: 10 MG/KG ONCE EVERY 2 WEEKS
     Route: 042
     Dates: start: 20241020, end: 20241220
  3. IOBITRIDOL [Concomitant]
     Active Substance: IOBITRIDOL
     Indication: Scan
     Route: 042
     Dates: start: 20241230, end: 20241230

REACTIONS (4)
  - Hyperleukocytosis [Recovered/Resolved]
  - Toxic skin eruption [Recovered/Resolved]
  - Mouth ulceration [Recovered/Resolved]
  - Pyrexia [Recovered/Resolved]

NARRATIVE: CASE EVENT DATE: 20250121
